FAERS Safety Report 4460513-3 (Version None)
Quarter: 2004Q3

REPORT INFORMATION
  Report Type: 
  Country: None (occurrence: None)
  Receive Date: 20040923
  Receipt Date: 20040910
  Transmission Date: 20050211
  Serious: Yes (Disabling)
  Sender: FDA-Public Use
  Company Number: 2004AP04814

PATIENT
  Age: 63 Year
  Sex: Male

DRUGS (3)
  1. XYLOCAINE [Suspect]
     Dates: start: 20040906, end: 20040906
  2. XYLOCAINE [Suspect]
     Dosage: 5 ML TP
     Route: 061
     Dates: start: 20040906, end: 20040906
  3. CARBOCAINE [Suspect]
     Dosage: 10 MK WEEK
     Dates: start: 20040421, end: 20040701

REACTIONS (3)
  - DIABETES MELLITUS [None]
  - DRUG ERUPTION [None]
  - URINARY TRACT INFECTION [None]
